FAERS Safety Report 14940308 (Version 9)
Quarter: 2022Q1

REPORT INFORMATION
  Report Type: Report from Study
  Country: IT (occurrence: IT)
  Receive Date: 20180525
  Receipt Date: 20220316
  Transmission Date: 20220423
  Serious: Yes (Hospitalization)
  Sender: FDA-Public Use
  Company Number: IT-SA-2018SA139610

PATIENT
  Age: 27 Year
  Sex: Female
  Weight: 52 kg

DRUGS (6)
  1. ALEMTUZUMAB [Suspect]
     Active Substance: ALEMTUZUMAB
     Indication: Relapsing-remitting multiple sclerosis
     Dosage: 12 MG, QD
     Route: 041
     Dates: start: 20180514, end: 20180515
  2. RANITIDINE [Concomitant]
     Active Substance: RANITIDINE
     Indication: Premedication
     Dosage: 300 MG, QD
     Route: 042
     Dates: start: 20180514, end: 20180516
  3. CETIRIZINE HYDROCHLORIDE [Concomitant]
     Active Substance: CETIRIZINE HYDROCHLORIDE
     Indication: Premedication
     Dosage: 10 MG
     Route: 048
     Dates: start: 20180514, end: 20180515
  4. PENCICLOVIR [Concomitant]
     Active Substance: PENCICLOVIR
     Indication: Antiviral prophylaxis
     Dosage: 500 MG, BID
     Route: 048
     Dates: start: 20180513, end: 20180516
  5. SOLU-MEDROL [Concomitant]
     Active Substance: METHYLPREDNISOLONE SODIUM SUCCINATE
     Indication: Premedication
     Dosage: 1 G/ 1000 MG, QD
     Route: 042
     Dates: start: 20180516, end: 20180518
  6. FAMCICLOVIR TEVA [Concomitant]
     Indication: Prophylaxis
     Dosage: 250 MG, BID
     Route: 048
     Dates: start: 20180513

REACTIONS (3)
  - Pulmonary alveolar haemorrhage [Not Recovered/Not Resolved]
  - Headache [Recovered/Resolved]
  - Headache [Recovered/Resolved]

NARRATIVE: CASE EVENT DATE: 20180514
